FAERS Safety Report 8466822 (Version 3)
Quarter: 2013Q2

REPORT INFORMATION
  Report Type: Spontaneous
  Country: US (occurrence: US)
  Receive Date: 20120320
  Receipt Date: 20130430
  Transmission Date: 20140414
  Serious: Yes (Hospitalization)
  Sender: FDA-Public Use
  Company Number: US-BAYER-2012-023755

PATIENT
  Age: 17 Year
  Sex: Female
  Weight: 99.77 kg

DRUGS (2)
  1. YASMIN [Suspect]
     Dosage: UNK
     Route: 048
     Dates: start: 200705, end: 200708
  2. PROTONIX [Concomitant]

REACTIONS (5)
  - Pulmonary embolism [Recovered/Resolved]
  - Injury [Recovered/Resolved]
  - Anxiety [None]
  - Depression [None]
  - Life expectancy shortened [None]
